FAERS Safety Report 9422256 (Version 1)
Quarter: 2013Q3

REPORT INFORMATION
  Report Type: Spontaneous
  Country: US (occurrence: US)
  Receive Date: 20130726
  Receipt Date: 20130726
  Transmission Date: 20140515
  Serious: Yes (Hospitalization, Other)
  Sender: FDA-Public Use
  Company Number: US-ASTELLAS-2013US005626

PATIENT
  Age: 56 Year
  Sex: Female

DRUGS (4)
  1. PROGRAF [Suspect]
     Indication: LIVER TRANSPLANT
     Dosage: 2 MG, BID
     Route: 048
     Dates: start: 20110518
  2. CELLCEPT                           /01275102/ [Concomitant]
     Indication: LIVER TRANSPLANT
     Dosage: 500 MG, BID
     Route: 048
  3. METHADONE [Concomitant]
     Indication: PRODUCT USED FOR UNKNOWN INDICATION
     Dosage: 20 MG, TID
     Route: 048
  4. KLONOPIN [Concomitant]
     Indication: PRODUCT USED FOR UNKNOWN INDICATION
     Dosage: 1 MG, TID
     Route: 048

REACTIONS (19)
  - Coronary artery disease [Unknown]
  - Mitral valve disease [Unknown]
  - Splenomegaly [Unknown]
  - Pulmonary mass [Unknown]
  - Nephrolithiasis [Recovering/Resolving]
  - Renal disorder [Recovering/Resolving]
  - Urinary tract infection enterococcal [Recovering/Resolving]
  - Asthenia [Recovering/Resolving]
  - Anaemia [Recovering/Resolving]
  - Acute myocardial infarction [Recovering/Resolving]
  - Myocardial infarction [Unknown]
  - Renal failure acute [Recovering/Resolving]
  - Lung infection [Unknown]
  - Pleural effusion [Unknown]
  - Atelectasis [Unknown]
  - Ascites [Unknown]
  - Thrombocytopenia [Unknown]
  - Anxiety [Unknown]
  - Depression [Unknown]
